FAERS Safety Report 10264249 (Version 1)
Quarter: 2014Q2

REPORT INFORMATION
  Report Type: Spontaneous
  Country: US (occurrence: None)
  Receive Date: 20140624
  Receipt Date: 20140624
  Transmission Date: 20141212
  Serious: Yes (Disabling)
  Sender: FDA-Public Use
  Company Number: None

PATIENT
  Age: 39 Year
  Sex: Female

DRUGS (2)
  1. SEROQUEL [Suspect]
     Indication: BIPOLAR DISORDER
     Dates: start: 20140303, end: 20140425
  2. SEROQUEL [Suspect]
     Indication: ANXIETY
     Dates: start: 20140303, end: 20140425

REACTIONS (3)
  - Tardive dyskinesia [None]
  - Renal pain [None]
  - Hepatic pain [None]
